FAERS Safety Report 5592307-X (Version None)
Quarter: 2007Q4

REPORT INFORMATION
  Report Type: 
  Country: None (occurrence: None)
  Receive Date: 20071217
  Receipt Date: 20071112
  Transmission Date: 20080405
  Serious: No
  Sender: FDA-Public Use
  Company Number: BDI-010543

PATIENT
  Age: 64 Year
  Sex: Female

DRUGS (2)
  1. MULTIHANCE [Suspect]
     Indication: MULTIPLE SCLEROSIS
     Dosage: 15 ML ONCE IV
     Route: 040
     Dates: start: 20070907, end: 20070907
  2. MULTIHANCE [Suspect]
     Indication: NUCLEAR MAGNETIC RESONANCE IMAGING
     Dosage: 15 ML ONCE IV
     Route: 040
     Dates: start: 20070907, end: 20070907

REACTIONS (1)
  - ANAPHYLACTOID REACTION [None]
